FAERS Safety Report 25358387 (Version 2)
Quarter: 2025Q3

REPORT INFORMATION
  Report Type: Spontaneous
  Country: EU (occurrence: EU)
  Receive Date: 20250526
  Receipt Date: 20250803
  Transmission Date: 20251021
  Serious: Yes (Life-Threatening, Hospitalization, Other)
  Sender: ALEXION PHARMACEUTICALS
  Company Number: EU-SA-2024SA302428

PATIENT
  Age: 6 Week
  Sex: Female
  Weight: 2.5 kg

DRUGS (2)
  1. NIRSEVIMAB [Suspect]
     Active Substance: NIRSEVIMAB
     Indication: Respiratory syncytial virus immunisation
     Dosage: 50 MG, QD
     Dates: start: 20241005, end: 20241005
  2. DEVICE [Suspect]
     Active Substance: DEVICE
     Indication: Respiratory syncytial virus immunisation

REACTIONS (2)
  - Infantile apnoea [Not Recovered/Not Resolved]
  - Neonatal hypoxia [Unknown]

NARRATIVE: CASE EVENT DATE: 20241005
